FAERS Safety Report 4428925-1 (Version None)
Quarter: 2004Q3

REPORT INFORMATION
  Report Type: 
  Country: None (occurrence: None)
  Receive Date: 20040817
  Receipt Date: 20040721
  Transmission Date: 20050211
  Serious: Yes (Hospitalization)
  Sender: FDA-Public Use
  Company Number: STA-AE-04-018

PATIENT
  Age: 72 Year
  Sex: Female

DRUGS (1)
  1. QUINIDINE (QUINIDINE, TABLET) [Suspect]
     Dosage: UNK
     Route: 065

REACTIONS (7)
  - ANTI-PLATELET ANTIBODY POSITIVE [None]
  - EPISTAXIS [None]
  - HAEMATURIA [None]
  - PALPITATIONS [None]
  - PETECHIAE [None]
  - SELF-MEDICATION [None]
  - THROMBOCYTOPENIA [None]
